FAERS Safety Report 19854906 (Version 1)
Quarter: 2021Q3

REPORT INFORMATION
  Report Type: Spontaneous
  Country: US (occurrence: US)
  Receive Date: 20210916
  Receipt Date: 20210916
  Transmission Date: 20211014
  Serious: Yes (Disabling)
  Sender: FDA-Public Use
  Company Number: None

PATIENT
  Age: 44 Year
  Sex: Female
  Weight: 54 kg

DRUGS (11)
  1. TRIAMCINOLONE ACETONIDE 0.1 [Suspect]
     Active Substance: TRIAMCINOLONE ACETONIDE
     Indication: ECZEMA
     Route: 061
     Dates: start: 20180113, end: 20190413
  2. VITAMIN D3 [Concomitant]
     Active Substance: CHOLECALCIFEROL
  3. ZINC. [Concomitant]
     Active Substance: ZINC
  4. TAURINE [Concomitant]
     Active Substance: TAURINE
  5. SPM SUPREME [Concomitant]
  6. PROBIOTIC [Concomitant]
     Active Substance: PROBIOTICS NOS
  7. COLLAGEN [Concomitant]
     Active Substance: COLLAGEN
  8. NALTREXONE [Concomitant]
     Active Substance: NALTREXONE
  9. QUERCETIN [Concomitant]
     Active Substance: QUERCETIN
  10. NAC [Concomitant]
  11. MULTI?VITAMIN [Concomitant]
     Active Substance: .ALPHA.-TOCOPHEROL ACETATE, DL-\ASCORBIC ACID\CYANOCOBALAMIN\FLUORIDE ION\FOLIC ACID\NIACIN\PYRIDOXINE\RIBOFLAVIN\THIAMINE\VITAMIN A\VITAMIN D

REACTIONS (10)
  - Eczema [None]
  - Hyperaesthesia [None]
  - Steroid withdrawal syndrome [None]
  - Temperature regulation disorder [None]
  - Skin laceration [None]
  - Skin atrophy [None]
  - Eye swelling [None]
  - Skin burning sensation [None]
  - Hypokinesia [None]
  - Skin exfoliation [None]

NARRATIVE: CASE EVENT DATE: 20190413
